FAERS Safety Report 4294276-1 (Version None)
Quarter: 2004Q1

REPORT INFORMATION
  Report Type: 
  Country: None (occurrence: None)
  Receive Date: 20040211
  Receipt Date: 20030808
  Transmission Date: 20041129
  Serious: No
  Sender: FDA-Public Use
  Company Number: US-GLAXOSMITHKLINE-A0420198A

PATIENT
  Age: 49 Year
  Sex: Female

DRUGS (5)
  1. LAMICTAL [Suspect]
     Indication: BIPOLAR DISORDER
     Dosage: 50MG PER DAY
     Route: 048
     Dates: start: 20030727, end: 20030807
  2. SEROQUEL [Concomitant]
  3. NEURONTIN [Concomitant]
  4. WELLBUTRIN SR [Concomitant]
  5. RITALIN TIME RELEASED [Concomitant]

REACTIONS (5)
  - BURNING SENSATION [None]
  - HEADACHE [None]
  - NIGHT SWEATS [None]
  - PYREXIA [None]
  - RASH [None]
